FAERS Safety Report 9002722 (Version 1)
Quarter: 2013Q1

REPORT INFORMATION
  Report Type: Spontaneous
  Country: US (occurrence: US)
  Receive Date: 20130107
  Receipt Date: 20130107
  Transmission Date: 20140127
  Serious: No
  Sender: FDA-Public Use
  Company Number: US-GLAXOSMITHKLINE-A0995802A

PATIENT
  Age: 39 Year
  Sex: Female

DRUGS (27)
  1. BENLYSTA [Suspect]
     Indication: SYSTEMIC LUPUS ERYTHEMATOSUS
     Route: 042
     Dates: start: 201204
  2. PROZAC [Concomitant]
  3. LYRICA [Concomitant]
  4. UNKNOWN MEDICATION [Concomitant]
  5. TOPOMAX [Concomitant]
  6. NUVIGIL [Concomitant]
  7. ELAVIL [Concomitant]
  8. ABILIFY [Concomitant]
  9. REQUIP [Concomitant]
  10. BENTYL [Concomitant]
  11. DEXAMETHASONE [Concomitant]
  12. NEXIUM [Concomitant]
  13. VITAMIN D [Concomitant]
  14. VITAMIN B12 [Concomitant]
  15. POTASSIUM CHLORIDE [Concomitant]
  16. MULTIVITAMIN [Concomitant]
  17. VALTREX [Concomitant]
  18. ZOFRAN [Concomitant]
  19. COMPAZINE [Concomitant]
  20. MARINOL [Concomitant]
  21. ATIVAN [Concomitant]
  22. AMBIEN [Concomitant]
  23. NITROGLYCERIN [Concomitant]
  24. ATENOLOL [Concomitant]
  25. FLEXAR [Concomitant]
  26. LIDODERM GEL [Concomitant]
  27. PLAQUENIL [Concomitant]

REACTIONS (8)
  - Influenza like illness [Not Recovered/Not Resolved]
  - Arthralgia [Unknown]
  - Infection [Unknown]
  - Pyrexia [Unknown]
  - Fatigue [Unknown]
  - Depression [Unknown]
  - Infusion site pain [Unknown]
  - Joint swelling [Unknown]
